FAERS Safety Report 7895610-3 (Version None)
Quarter: 2011Q4

REPORT INFORMATION
  Report Type: 
  Country: None (occurrence: None)
  Receive Date: 20111106
  Receipt Date: 20110829
  Transmission Date: 20120403
  Serious: No
  Sender: FDA-Public Use
  Company Number: US-AMGEN-USASP2011044117

PATIENT
  Age: 56 Year
  Sex: Female
  Weight: 82.54 kg

DRUGS (8)
  1. ENBREL [Suspect]
     Indication: PRODUCT USED FOR UNKNOWN INDICATION
     Dosage: 50 MG, QWK
     Route: 058
  2. METHOTREXATE [Concomitant]
  3. VITAMIN A [Concomitant]
  4. VITAMIN D [Concomitant]
  5. GREEN SOURCE MULTIVITAMIN [Concomitant]
  6. FOLIC ACID [Concomitant]
     Dosage: 1 MG, UNK
  7. STRESS B COMPLEX [Concomitant]
  8. LOVAZA [Concomitant]
     Dosage: 1000 MG, UNK

REACTIONS (2)
  - INJECTION SITE ERYTHEMA [None]
  - INJECTION SITE URTICARIA [None]
